APPROVED DRUG PRODUCT: NAPROXEN
Active Ingredient: NAPROXEN
Strength: 250MG
Dosage Form/Route: TABLET;ORAL
Application: A074110 | Product #001
Applicant: HAMILTON PHARMACEUTICALS LTD
Approved: Oct 30, 1992 | RLD: No | RS: No | Type: DISCN